FAERS Safety Report 10889005 (Version 1)
Quarter: 2015Q1

REPORT INFORMATION
  Report Type: Spontaneous
  Country: US (occurrence: US)
  Receive Date: 20150305
  Receipt Date: 20150305
  Transmission Date: 20150721
  Serious: No
  Sender: FDA-Public Use
  Company Number: US-BAYER-2015-033406

PATIENT
  Age: 61 Year
  Sex: Female
  Weight: 59 kg

DRUGS (4)
  1. ALEVE [Suspect]
     Active Substance: NAPROXEN SODIUM
     Indication: SWELLING
  2. VITAMIN D [Concomitant]
     Active Substance: CHOLECALCIFEROL
  3. ALEVE [Suspect]
     Active Substance: NAPROXEN SODIUM
     Indication: MYALGIA
     Dosage: 1 DF, PRN
     Route: 048
  4. VITAMIN B12 [Concomitant]
     Active Substance: CYANOCOBALAMIN

REACTIONS (3)
  - Drug ineffective [None]
  - Drug ineffective [None]
  - Drug ineffective [None]

NARRATIVE: CASE EVENT DATE: 20150227
